FAERS Safety Report 12999627 (Version 1)
Quarter: 2016Q4

REPORT INFORMATION
  Report Type: Spontaneous
  Country: US (occurrence: US)
  Receive Date: 20161205
  Receipt Date: 20161205
  Transmission Date: 20170207
  Serious: No
  Sender: FDA-Public Use
  Company Number: US-BAYER-2016-229584

PATIENT
  Age: 72 Year
  Sex: Male

DRUGS (3)
  1. VITAMIN D3 [Concomitant]
     Active Substance: CHOLECALCIFEROL
  2. NEXIUM [Concomitant]
     Active Substance: ESOMEPRAZOLE MAGNESIUM
     Indication: GASTROOESOPHAGEAL REFLUX DISEASE
     Dosage: 20 UNK, UNK
     Route: 048
     Dates: start: 201003
  3. LEVITRA [Suspect]
     Active Substance: VARDENAFIL HYDROCHLORIDE TRIHYDRATE
     Indication: ERECTILE DYSFUNCTION
     Dosage: 20 MG, Q2WK
     Route: 048
     Dates: start: 2014, end: 20161123

REACTIONS (1)
  - Therapeutic product ineffective [None]

NARRATIVE: CASE EVENT DATE: 20161123
